FAERS Safety Report 21834920 (Version 2)
Quarter: 2023Q2

REPORT INFORMATION
  Report Type: Report from Study
  Country: US (occurrence: None)
  Receive Date: 20230109
  Receipt Date: 20230414
  Transmission Date: 20230721
  Serious: Yes (Hospitalization, Other)
  Sender: FDA-Public Use
  Company Number: US-Merck Healthcare KGaA-9376588

PATIENT
  Sex: Female

DRUGS (2)
  1. REBIF [Suspect]
     Active Substance: INTERFERON BETA-1A
     Indication: Multiple sclerosis
     Dosage: REBIF PREFILLED SYRINGE, PREVIOUSLY REBIDOSE
     Route: 058
     Dates: start: 20100615, end: 20180212
  2. REBIF [Suspect]
     Active Substance: INTERFERON BETA-1A
     Dosage: REBIF: REBIF PREFILLED SYRINGE, PREVIOUSLY REBIDOSE
     Route: 058
     Dates: start: 20220131

REACTIONS (13)
  - Coronary artery occlusion [Unknown]
  - Pneumonia [Unknown]
  - Thrombosis [Recovered/Resolved]
  - COVID-19 [Unknown]
  - Haemoptysis [Unknown]
  - Weight decreased [Unknown]
  - Wound [Unknown]
  - Medical device site scar [Unknown]
  - Musculoskeletal disorder [Unknown]
  - Memory impairment [Unknown]
  - Condition aggravated [Unknown]
  - Impaired healing [Unknown]
  - Product administration interrupted [Unknown]
